FAERS Safety Report 8557618-4 (Version None)
Quarter: 2012Q3

REPORT INFORMATION
  Report Type: 
  Country: None (occurrence: None)
  Receive Date: 20120801
  Receipt Date: 20120724
  Transmission Date: 20120928
  Serious: Yes (Death)
  Sender: FDA-Public Use
  Company Number: US-MYLANLABS-2011S1020269

PATIENT
  Age: 32 Year
  Sex: Female
  Weight: 68.04 kg

DRUGS (6)
  1. CLONAZEPAM [Concomitant]
  2. HYDROXYZINE PAM [Concomitant]
  3. TRAZODONE HYDROCHLORIDE [Concomitant]
     Indication: INSOMNIA
  4. FENTANYL-100 [Suspect]
     Indication: PAIN
     Dosage: CHANGE Q3D
     Route: 062
     Dates: end: 20091126
  5. FENTANYL-100 [Suspect]
     Dosage: CHANGE Q3D
     Route: 062
     Dates: end: 20091126
  6. CITALOPRAM HYDROBROMIDE [Concomitant]

REACTIONS (6)
  - ASPHYXIA [None]
  - ASPIRATION [None]
  - OVERDOSE [None]
  - RESPIRATORY DEPRESSION [None]
  - TOXICITY TO VARIOUS AGENTS [None]
  - CONVULSION [None]
